FAERS Safety Report 7396686-2 (Version None)
Quarter: 2011Q2

REPORT INFORMATION
  Report Type: 
  Country: None (occurrence: None)
  Receive Date: 20110406
  Receipt Date: 20110324
  Transmission Date: 20111010
  Serious: Yes (Hospitalization)
  Sender: FDA-Public Use
  Company Number: CA-SHIRE-SPV1-2011-00189

PATIENT
  Sex: Male
  Weight: 99.6 kg

DRUGS (6)
  1. VYVANSE [Suspect]
     Indication: ATTENTION DEFICIT/HYPERACTIVITY DISORDER
     Dosage: 30 MG, 1X/DAY:QD
     Route: 048
     Dates: start: 20101129
  2. VYVANSE [Suspect]
     Dosage: 20 MG, UNK
     Route: 048
     Dates: start: 20100928, end: 20100101
  3. VYVANSE [Suspect]
     Dosage: 30 MG, 1X/DAY:QD
     Route: 048
     Dates: start: 20100101, end: 20101110
  4. SEROQUEL [Concomitant]
     Indication: BIPOLAR DISORDER
     Dosage: 200 MG, OTHER, AT HOURS OF SLEEP
     Route: 048
  5. CONCERTA [Suspect]
     Indication: ATTENTION DEFICIT/HYPERACTIVITY DISORDER
     Dosage: UNK MG, UNKNOWN (36 TO 54 MG)
     Route: 048
     Dates: start: 20101111, end: 20101128
  6. ZOLOFT [Concomitant]
     Indication: BIPOLAR DISORDER
     Dosage: 200 MG, OTHER,AT HOURS OF SLEEP
     Route: 048

REACTIONS (3)
  - NAUSEA [None]
  - PANCREATITIS ACUTE [None]
  - DECREASED APPETITE [None]
